FAERS Safety Report 5952147-6 (Version None)
Quarter: 2008Q4

REPORT INFORMATION
  Report Type: 
  Country: None (occurrence: None)
  Receive Date: 20081113
  Receipt Date: 20080707
  Transmission Date: 20090506
  Serious: No
  Sender: FDA-Public Use
  Company Number: A0736242A

PATIENT
  Age: 49 Year
  Sex: Male

DRUGS (6)
  1. COREG [Suspect]
     Dosage: 25MG TWICE PER DAY
     Route: 048
     Dates: end: 20080301
  2. COREG CR [Suspect]
     Dosage: 80MG PER DAY
     Route: 048
     Dates: start: 20080301
  3. QUINAPRIL [Concomitant]
  4. PLAVIX [Concomitant]
  5. ZOCOR [Concomitant]
  6. FISH OIL [Concomitant]

REACTIONS (1)
  - BLOOD GLUCOSE INCREASED [None]
